FAERS Safety Report 5237827-2 (Version None)
Quarter: 2007Q1

REPORT INFORMATION
  Report Type: 
  Country: None (occurrence: None)
  Receive Date: 20070214
  Receipt Date: 20070201
  Transmission Date: 20070707
  Serious: Yes (Hospitalization, Other)
  Sender: FDA-Public Use
  Company Number: US-ELI_LILLY_AND_COMPANY-US200511000369

PATIENT
  Age: 80 Year
  Sex: Female
  Weight: 56.235 kg

DRUGS (12)
  1. ULTRAM [Concomitant]
     Indication: BACK PAIN
  2. FORTEO [Suspect]
     Indication: OSTEOPOROSIS
     Dosage: UNK, UNK
     Dates: start: 20050301, end: 20051101
  3. GUAIFENESIN [Concomitant]
  4. MICARDIS HCT [Concomitant]
  5. ZOLOFT [Concomitant]
  6. CITRACAL [Concomitant]
  7. ROCALTROL [Concomitant]
  8. SKELAXIN [Concomitant]
  9. KLONOPIN [Concomitant]
  10. CENTRUM SILVER [Concomitant]
  11. DOXAZOSIN MESYLATE [Concomitant]
  12. PROCRIT [Concomitant]

REACTIONS (9)
  - BACK INJURY [None]
  - CONCUSSION [None]
  - FALL [None]
  - HEAD INJURY [None]
  - HEADACHE [None]
  - INJURY [None]
  - NECK PAIN [None]
  - SCRATCH [None]
  - SPINAL DISORDER [None]
